FAERS Safety Report 18463871 (Version 2)
Quarter: 2021Q1

REPORT INFORMATION
  Report Type: Spontaneous
  Country: DE (occurrence: DE)
  Receive Date: 20201104
  Receipt Date: 20210310
  Transmission Date: 20210419
  Serious: Yes (Life-Threatening, Hospitalization, Other)
  Sender: FDA-Public Use
  Company Number: DE-JNJFOC-20201043149

PATIENT
  Age: 65 Year
  Sex: Female
  Weight: 74 kg

DRUGS (14)
  1. DIPIDOLOR [Concomitant]
     Active Substance: PIRITRAMIDE
     Indication: PRODUCT USED FOR UNKNOWN INDICATION
     Route: 042
  2. BIPERIDEN [Concomitant]
     Active Substance: BIPERIDEN
     Indication: PRODUCT USED FOR UNKNOWN INDICATION
     Route: 048
  3. HALOPERIDOL. [Suspect]
     Active Substance: HALOPERIDOL
     Indication: SCHIZOAFFECTIVE DISORDER
     Route: 042
     Dates: start: 20190502, end: 20190515
  4. ESIDRIX [Concomitant]
     Active Substance: HYDROCHLOROTHIAZIDE
     Indication: PRODUCT USED FOR UNKNOWN INDICATION
     Route: 048
  5. LOCOL                              /01224502/ [Suspect]
     Active Substance: FLUVASTATIN SODIUM
     Indication: LIPID METABOLISM DISORDER
     Route: 048
     Dates: start: 20190430, end: 20190620
  6. FLUANXOL [FLUPENTIXOL DIHYDROCHLORIDE] [Concomitant]
     Active Substance: FLUPENTIXOL DIHYDROCHLORIDE
     Indication: PRODUCT USED FOR UNKNOWN INDICATION
     Route: 048
  7. CONCOR [Concomitant]
     Active Substance: BISOPROLOL FUMARATE
     Indication: PRODUCT USED FOR UNKNOWN INDICATION
     Route: 048
  8. CLONIDINE. [Suspect]
     Active Substance: CLONIDINE
     Indication: HYPERTENSION
     Route: 042
     Dates: start: 20190502, end: 20190515
  9. CANDESARTAN CILEXETIL. [Concomitant]
     Active Substance: CANDESARTAN CILEXETIL
     Indication: PRODUCT USED FOR UNKNOWN INDICATION
     Route: 065
  10. NORVASC [Concomitant]
     Active Substance: AMLODIPINE BESYLATE
     Indication: PRODUCT USED FOR UNKNOWN INDICATION
     Route: 048
  11. CITALOPRAM [Concomitant]
     Active Substance: CITALOPRAM HYDROBROMIDE
     Indication: PRODUCT USED FOR UNKNOWN INDICATION
     Route: 048
  12. NOVORAPID [Concomitant]
     Active Substance: INSULIN ASPART
     Indication: PRODUCT USED FOR UNKNOWN INDICATION
     Route: 058
  13. PANTOZOLE [Concomitant]
     Active Substance: PANTOPRAZOLE SODIUM
     Indication: PRODUCT USED FOR UNKNOWN INDICATION
     Route: 048
  14. CLOPIDOGREL [Concomitant]
     Active Substance: CLOPIDOGREL BISULFATE
     Indication: PRODUCT USED FOR UNKNOWN INDICATION
     Route: 048

REACTIONS (12)
  - Blood creatine phosphokinase increased [Recovered/Resolved]
  - Off label use [Unknown]
  - Agitation [Recovered/Resolved]
  - Rhabdomyolysis [Recovered/Resolved]
  - Monoparesis [Recovered/Resolved with Sequelae]
  - Pyrexia [Recovered/Resolved]
  - Hypernatraemia [Recovered/Resolved]
  - Oromandibular dystonia [Recovered/Resolved]
  - Coma [Recovered/Resolved]
  - Product use issue [Unknown]
  - Unresponsive to stimuli [Recovered/Resolved]
  - Respiratory failure [Recovered/Resolved]

NARRATIVE: CASE EVENT DATE: 20190430
